FAERS Safety Report 8766961 (Version 2)
Quarter: 2012Q4

REPORT INFORMATION
  Report Type: 
  Country: DE (occurrence: GH)
  Receive Date: 20120903
  Receipt Date: 20120903
  Transmission Date: 20130627
  Serious: Yes (Hospitalization)
  Sender: FDA-Public Use
  Company Number: DE-BAYER-2012-068794

PATIENT
  Age: 20 Year
  Sex: Female

DRUGS (4)
  1. CIPROFLOXACIN MONOHYDROCHLORIDE [Suspect]
     Dosage: UNK
  2. RIAMET [Suspect]
     Indication: MALARIA
     Dosage: UNK
  3. QUININE HYDROCHLORIDE [Suspect]
  4. ARTEMETHER [Suspect]

REACTIONS (4)
  - Aggression [Unknown]
  - Insomnia [Unknown]
  - Restlessness [Unknown]
  - Psychotic disorder [Unknown]
